FAERS Safety Report 4606739-7 (Version None)
Quarter: 2005Q1

REPORT INFORMATION
  Report Type: 
  Country: None (occurrence: None)
  Receive Date: 20050309
  Receipt Date: 20050222
  Transmission Date: 20050727
  Serious: Yes (Other)
  Sender: FDA-Public Use
  Company Number: USA050291479

PATIENT
  Age: 15 Year
  Sex: Female
  Weight: 65 kg

DRUGS (2)
  1. HUMALOG [Suspect]
     Indication: DIABETES MELLITUS
     Dates: start: 19990101
  2. LANTUS [Concomitant]

REACTIONS (7)
  - ACIDOSIS [None]
  - BLOOD GLUCOSE INCREASED [None]
  - BLOOD KETONE BODY [None]
  - DIZZINESS [None]
  - FEELING ABNORMAL [None]
  - PHARMACEUTICAL PRODUCT COMPLAINT [None]
  - STOMACH DISCOMFORT [None]
